FAERS Safety Report 15278717 (Version 5)
Quarter: 2020Q3

REPORT INFORMATION
  Report Type: Spontaneous
  Country: US (occurrence: US)
  Receive Date: 20180815
  Receipt Date: 20200810
  Transmission Date: 20201102
  Serious: Yes (Life-Threatening)
  Sender: FDA-Public Use
  Company Number: US-BIOGEN-2018BI00620606

PATIENT
  Age: 51 Year
  Sex: Male
  Weight: 68.04 kg

DRUGS (1)
  1. TYSABRI [Suspect]
     Active Substance: NATALIZUMAB
     Indication: MULTIPLE SCLEROSIS
     Dosage: INFUSED OVER 1 HOUR
     Route: 050
     Dates: start: 20150520, end: 20180508

REACTIONS (7)
  - Multiple sclerosis relapse [Unknown]
  - Depression [Unknown]
  - Suicidal ideation [Recovered/Resolved]
  - Road traffic accident [Recovered/Resolved]
  - Post-traumatic stress disorder [Unknown]
  - Musculoskeletal disorder [Unknown]
  - Anxiety [Unknown]

NARRATIVE: CASE EVENT DATE: 2017
